FAERS Safety Report 5997121-9 (Version None)
Quarter: 2008Q4

REPORT INFORMATION
  Report Type: 
  Country: None (occurrence: None)
  Receive Date: 20081212
  Receipt Date: 20081105
  Transmission Date: 20090506
  Serious: No
  Sender: FDA-Public Use
  Company Number: US-ABBOTT-08P-163-0486362-00

PATIENT
  Sex: Female
  Weight: 86.26 kg

DRUGS (8)
  1. HUMIRA [Suspect]
     Indication: RHEUMATOID ARTHRITIS
     Dosage: EVERY TWO WEEKS
     Route: 050
     Dates: start: 20080301, end: 20081007
  2. METHOTREXATE [Concomitant]
     Indication: RHEUMATOID ARTHRITIS
     Dosage: CURRENTLY TAKING FOUR TABLETS WEEKLY (STARTED WITH EIGHT TABLETS WEEKLY)
     Dates: start: 20040101
  3. RABEPRAZOLE SODIUM [Concomitant]
     Indication: GASTROOESOPHAGEAL REFLUX DISEASE
  4. FOLIC ACID [Concomitant]
     Indication: VITAMIN SUPPLEMENTATION
  5. RIBOFLAVIN TAB [Concomitant]
     Indication: MIGRAINE
  6. MAGNESIUM SULFATE [Concomitant]
     Indication: MIGRAINE
  7. MAGNESIUM SULFATE [Concomitant]
     Indication: MUSCLE SPASMS
  8. NORTRIPTYLINE HCL [Concomitant]
     Indication: MIGRAINE

REACTIONS (4)
  - CONTUSION [None]
  - HAEMORRHAGE [None]
  - SKIN ATROPHY [None]
  - SKIN EXFOLIATION [None]
